FAERS Safety Report 4368455-9 (Version None)
Quarter: 2004Q2

REPORT INFORMATION
  Report Type: 
  Country: None (occurrence: None)
  Receive Date: 20040525
  Receipt Date: 20040517
  Transmission Date: 20050107
  Serious: Yes (Life-Threatening)
  Sender: FDA-Public Use
  Company Number: TUK2004A00057

PATIENT
  Age: 42 Year
  Sex: Male

DRUGS (4)
  1. ACTOS [Suspect]
     Indication: DIABETES MELLITUS NON-INSULIN-DEPENDENT
     Dosage: 30 MG ORAL
     Route: 048
     Dates: start: 20031101, end: 20040502
  2. METFORMIN HCL [Concomitant]
  3. ACETAMINOPHEN [Concomitant]
  4. IMODIUM [Concomitant]

REACTIONS (3)
  - HEPATITIS [None]
  - INTERNATIONAL NORMALISED RATIO DECREASED [None]
  - PYREXIA [None]
